FAERS Safety Report 5162816-6 (Version None)
Quarter: 2006Q4

REPORT INFORMATION
  Report Type: 
  Country: None (occurrence: None)
  Receive Date: 20061201
  Receipt Date: 20061103
  Transmission Date: 20070319
  Serious: Yes (Other)
  Sender: FDA-Public Use
  Company Number: CA-GLAXOSMITHKLINE-A0626205A

PATIENT
  Age: 80 Year
  Sex: Female

DRUGS (5)
  1. AVANDIA [Suspect]
     Dosage: 6MG PER DAY
     Route: 048
     Dates: start: 20060803, end: 20060914
  2. PRAVACHOL [Concomitant]
     Dosage: 20MG PER DAY
     Route: 048
     Dates: start: 19980801
  3. METFORMIN [Concomitant]
     Dosage: 500MG TWICE PER DAY
     Route: 048
     Dates: start: 19970403
  4. GLYBURIDE [Concomitant]
     Dosage: 5MG TWICE PER DAY
     Route: 048
     Dates: start: 19980407
  5. NORVASC [Concomitant]
     Indication: HYPERTENSION
     Dosage: 10MG PER DAY
     Route: 048

REACTIONS (3)
  - CONFUSIONAL STATE [None]
  - DIZZINESS [None]
  - PULMONARY OEDEMA [None]
